FAERS Safety Report 7087846-9 (Version None)
Quarter: 2010Q4

REPORT INFORMATION
  Report Type: 
  Country: None (occurrence: None)
  Receive Date: 20101108
  Receipt Date: 20101027
  Transmission Date: 20110411
  Serious: Yes (Other)
  Sender: FDA-Public Use
  Company Number: US-JNJFOC-20101100362

PATIENT
  Sex: Male
  Weight: 63.5 kg

DRUGS (5)
  1. FENTANYL CITRATE [Suspect]
     Indication: PAIN
     Route: 062
  2. FENTANYL CITRATE [Suspect]
     Indication: BACK DISORDER
     Route: 062
  3. SANDOZ FENTANYL TRANSDERMAL SYSTEM [Suspect]
     Indication: PAIN
     Route: 062
  4. SANDOZ FENTANYL TRANSDERMAL SYSTEM [Suspect]
     Indication: BACK DISORDER
     Route: 062
  5. INSULIN [Concomitant]
     Indication: DIABETES MELLITUS
     Route: 058

REACTIONS (12)
  - ANGER [None]
  - BLOOD GLUCOSE INCREASED [None]
  - BODY HEIGHT DECREASED [None]
  - DEPENDENCE [None]
  - DRUG INEFFECTIVE [None]
  - DYSKINESIA [None]
  - GLYCOSYLATED HAEMOGLOBIN INCREASED [None]
  - PRODUCT ADHESION ISSUE [None]
  - PRODUCT QUALITY ISSUE [None]
  - WEIGHT DECREASED [None]
  - WITHDRAWAL SYNDROME [None]
  - WRONG TECHNIQUE IN DRUG USAGE PROCESS [None]
